FAERS Safety Report 16338643 (Version 2)
Quarter: 2019Q2

REPORT INFORMATION
  Report Type: Report from Study
  Country: US (occurrence: US)
  Receive Date: 20190521
  Receipt Date: 20190604
  Transmission Date: 20190711
  Serious: Yes (Hospitalization, Other)
  Sender: FDA-Public Use
  Company Number: US-GILEAD-2019-0408927

PATIENT
  Age: 39 Year
  Sex: Male

DRUGS (2)
  1. AZTREONAM LYSINE [Suspect]
     Active Substance: AZTREONAM LYSINE
     Indication: CYSTIC FIBROSIS
     Dosage: 75 MG, TID
     Route: 055
     Dates: start: 20160322
  2. SYMDEKO [Suspect]
     Active Substance: IVACAFTOR\TEZACAFTOR
     Indication: CYSTIC FIBROSIS
     Dosage: 100-150/150MG TABLETS
     Route: 065

REACTIONS (7)
  - Infection [Not Recovered/Not Resolved]
  - Intestinal obstruction [Unknown]
  - Cystic fibrosis [Not Recovered/Not Resolved]
  - Sputum increased [Unknown]
  - Pathogen resistance [Not Recovered/Not Resolved]
  - Cystic fibrosis respiratory infection suppression [Not Recovered/Not Resolved]
  - Pseudomonas infection [Not Recovered/Not Resolved]
